FAERS Safety Report 7794507-7 (Version None)
Quarter: 2011Q4

REPORT INFORMATION
  Report Type: 
  Country: None (occurrence: None)
  Receive Date: 20111004
  Receipt Date: 20110928
  Transmission Date: 20120403
  Serious: Yes (Hospitalization)
  Sender: FDA-Public Use
  Company Number: US-ABBOTT-11P-163-0843440-00

PATIENT
  Sex: Male
  Weight: 70.824 kg

DRUGS (5)
  1. HUMIRA [Suspect]
     Indication: CROHN'S DISEASE
     Dates: start: 20110729
  2. HUMIRA [Suspect]
     Indication: COLITIS
  3. PREDNISONE [Concomitant]
     Indication: CROHN'S DISEASE
  4. HUMIRA [Suspect]
  5. APRISO [Concomitant]
     Indication: CROHN'S DISEASE

REACTIONS (4)
  - CROHN'S DISEASE [None]
  - DIARRHOEA [None]
  - ABDOMINAL DISCOMFORT [None]
  - GASTROINTESTINAL INFLAMMATION [None]
